FAERS Safety Report 22644906 (Version 1)
Quarter: 2023Q2

REPORT INFORMATION
  Report Type: Report from Study
  Country: US (occurrence: US)
  Receive Date: 20230627
  Receipt Date: 20230627
  Transmission Date: 20230721
  Serious: Yes (Other)
  Sender: FDA-Public Use
  Company Number: US-AMGEN-USASL2023103579

PATIENT
  Sex: Female

DRUGS (3)
  1. NEULASTA [Suspect]
     Active Substance: PEGFILGRASTIM
     Indication: Agranulocytosis
     Dosage: UNK
     Route: 065
  2. KANJINTI [Suspect]
     Active Substance: TRASTUZUMAB-ANNS
     Indication: Agranulocytosis
     Dosage: UNK
     Route: 065
  3. KANJINTI [Suspect]
     Active Substance: TRASTUZUMAB-ANNS
     Indication: Off label use

REACTIONS (2)
  - Agranulocytosis [Unknown]
  - Off label use [Unknown]
